FAERS Safety Report 6449372-7 (Version None)
Quarter: 2009Q4

REPORT INFORMATION
  Report Type: 
  Country: None (occurrence: None)
  Receive Date: 20091120
  Receipt Date: 20081209
  Transmission Date: 20100525
  Serious: Yes (Other)
  Sender: FDA-Public Use
  Company Number: US-AMGEN-QUU321195

PATIENT
  Sex: Female

DRUGS (4)
  1. ENBREL [Suspect]
     Indication: PSORIASIS
     Route: 058
     Dates: start: 20031001
  2. ENBREL [Suspect]
     Indication: PSORIATIC ARTHROPATHY
  3. METHOTREXATE [Concomitant]
     Dates: start: 20041127
  4. METHOTREXATE [Concomitant]
     Dates: start: 20080225

REACTIONS (3)
  - INFECTIOUS MONONUCLEOSIS [None]
  - LOWER RESPIRATORY TRACT INFECTION [None]
  - PSORIASIS [None]
